FAERS Safety Report 14727309 (Version 3)
Quarter: 2018Q3

REPORT INFORMATION
  Report Type: Spontaneous
  Country: US (occurrence: US)
  Receive Date: 20180406
  Receipt Date: 20180727
  Transmission Date: 20181010
  Serious: No
  Sender: FDA-Public Use
  Company Number: US-PFIZER INC-2018140327

PATIENT
  Age: 70 Year
  Sex: Female

DRUGS (1)
  1. DICLOFENAC EPOLAMINE [Suspect]
     Active Substance: DICLOFENAC EPOLAMINE
     Indication: ARTHROPATHY
     Dosage: 75 MG, 2X/DAY
     Dates: end: 2017

REACTIONS (2)
  - Rheumatoid nodule [Unknown]
  - Tenderness [Unknown]
